FAERS Safety Report 11540864 (Version 1)
Quarter: 2015Q3

REPORT INFORMATION
  Report Type: Spontaneous
  Country: US (occurrence: US)
  Receive Date: 20150923
  Receipt Date: 20150923
  Transmission Date: 20151125
  Serious: No
  Sender: FDA-Public Use
  Company Number: US-WATSON-2015-05320

PATIENT
  Sex: Male

DRUGS (1)
  1. TESTOSTERONE CYPIONATE (WATSON LABORATORIES) [Suspect]
     Active Substance: TESTOSTERONE CYPIONATE
     Indication: BLOOD TESTOSTERONE DECREASED
     Dosage: 1 DF, 1/WEEK
     Route: 065
     Dates: start: 2014

REACTIONS (2)
  - Injection site pain [Recovered/Resolved]
  - Drug administration error [Recovered/Resolved]

NARRATIVE: CASE EVENT DATE: 2014
